FAERS Safety Report 7668556-3 (Version None)
Quarter: 2011Q3

REPORT INFORMATION
  Report Type: 
  Country: None (occurrence: None)
  Receive Date: 20110808
  Receipt Date: 20110730
  Transmission Date: 20111222
  Serious: Yes (Hospitalization)
  Sender: FDA-Public Use
  Company Number: BR-MEDIMMUNE-MEDI-0013338

PATIENT
  Sex: Male
  Weight: 7.4 kg

DRUGS (9)
  1. CAPTOPRIL [Concomitant]
     Indication: PULMONARY HYPERTENSION
     Route: 048
     Dates: start: 20100401, end: 20110101
  2. FUROSEMIDE [Concomitant]
     Route: 048
     Dates: start: 20100401, end: 20100901
  3. DIGOXIN [Concomitant]
     Indication: PULMONARY HYPERTENSION
     Route: 048
     Dates: start: 20100401, end: 20110101
  4. O2 THERAPY [Concomitant]
     Indication: PULMONARY HYPERTENSION
     Dates: start: 20100401
  5. SYNAGIS [Suspect]
     Indication: PULMONARY HYPERTENSION
     Route: 030
     Dates: start: 20100623, end: 20100623
  6. SYNAGIS [Suspect]
     Indication: CARDIAC DISORDER
     Route: 030
     Dates: start: 20110601, end: 20110601
  7. SILDENAFIL CITRATE [Concomitant]
     Indication: PULMONARY HYPERTENSION
     Route: 048
     Dates: start: 20100401
  8. DIGOXIN [Concomitant]
     Indication: CARDIAC DISORDER
  9. SILDENAFIL CITRATE [Concomitant]
     Indication: CARDIAC DISORDER
     Route: 048
     Dates: start: 20100401

REACTIONS (6)
  - PNEUMONIA [None]
  - PULMONARY HYPERTENSION [None]
  - CONGENITAL DIAPHRAGMATIC HERNIA [None]
  - HERNIA DIAPHRAGMATIC REPAIR [None]
  - BRONCHOPNEUMONIA [None]
  - CARDIOMYOPATHY [None]
